FAERS Safety Report 11506735 (Version 1)
Quarter: 2015Q3

REPORT INFORMATION
  Report Type: Other
  Country: GB (occurrence: GB)
  Receive Date: 20150915
  Receipt Date: 20150915
  Transmission Date: 20151125
  Serious: Yes (Other)
  Sender: FDA-Public Use
  Company Number: GB-LUPIN PHARMACEUTICALS INC.-2015-02743

PATIENT
  Age: 28 Year
  Sex: Male

DRUGS (16)
  1. CLOZAPINE. [Suspect]
     Active Substance: CLOZAPINE
     Dosage: 500 MG/DAY
     Route: 065
  2. ISONIAZID. [Concomitant]
     Active Substance: ISONIAZID
     Indication: TUBERCULOSIS GASTROINTESTINAL
     Route: 065
  3. CLOZAPINE. [Suspect]
     Active Substance: CLOZAPINE
     Dosage: 400 MG/DAY
     Route: 065
  4. LAMOTRIGINE. [Suspect]
     Active Substance: LAMOTRIGINE
     Indication: CONVULSION PROPHYLAXIS
  5. MOXIFLOXACIN. [Concomitant]
     Active Substance: MOXIFLOXACIN
     Indication: TUBERCULOSIS GASTROINTESTINAL
     Route: 065
  6. PYRAZINAMIDE. [Concomitant]
     Active Substance: PYRAZINAMIDE
     Indication: TUBERCULOSIS GASTROINTESTINAL
     Route: 065
  7. RIFAMPICIN [Suspect]
     Active Substance: RIFAMPIN
     Indication: TUBERCULOSIS GASTROINTESTINAL
     Route: 065
  8. CLOZAPINE. [Suspect]
     Active Substance: CLOZAPINE
     Dosage: 1000 MG/DAY
     Route: 065
  9. CLOZAPINE. [Suspect]
     Active Substance: CLOZAPINE
     Dosage: DOWN-TITRATING AT A RATE OF 50 MG/DAY
     Route: 065
  10. LAMOTRIGINE. [Suspect]
     Active Substance: LAMOTRIGINE
     Indication: MOOD ALTERED
     Route: 065
  11. CLOZAPINE. [Suspect]
     Active Substance: CLOZAPINE
     Dosage: DOSE INCREASED
     Route: 065
  12. CLOZAPINE. [Suspect]
     Active Substance: CLOZAPINE
     Dosage: 500 MG/DAY
     Route: 065
  13. FLUOXETINE [Concomitant]
     Active Substance: FLUOXETINE\FLUOXETINE HYDROCHLORIDE
     Indication: DEPRESSIVE SYMPTOM
     Route: 065
  14. CLOZAPINE. [Suspect]
     Active Substance: CLOZAPINE
     Indication: SCHIZOAFFECTIVE DISORDER
     Dosage: 300 MG/DAY
     Route: 065
  15. CLOZAPINE. [Suspect]
     Active Substance: CLOZAPINE
     Dosage: 800 MG/DAY
     Route: 065
  16. CLOZAPINE. [Suspect]
     Active Substance: CLOZAPINE
     Dosage: 550 MG/DAY
     Route: 065

REACTIONS (3)
  - Drug interaction [Recovering/Resolving]
  - Psychotic disorder [Recovering/Resolving]
  - Prescribed overdose [Unknown]
